FAERS Safety Report 14304814 (Version 1)
Quarter: 2017Q4

REPORT INFORMATION
  Report Type: Spontaneous
  Country: JP (occurrence: JP)
  Receive Date: 20171219
  Receipt Date: 20171219
  Transmission Date: 20180321
  Serious: Yes (Other)
  Sender: FDA-Public Use
  Company Number: JP-OTSUKA-JP-2012-14110

PATIENT
  Age: 26 Year
  Sex: Female
  Weight: 48 kg

DRUGS (13)
  1. LIMAS [Concomitant]
     Active Substance: LITHIUM CARBONATE
     Indication: PRODUCT USED FOR UNKNOWN INDICATION
     Dosage: 400 MG, QD
     Route: 048
  2. ABILIFY [Suspect]
     Active Substance: ARIPIPRAZOLE
     Indication: HYPOMANIA
     Dosage: 6 MG, BID
     Route: 048
     Dates: start: 20101211, end: 20110815
  3. HALCION [Concomitant]
     Active Substance: TRIAZOLAM
     Indication: INITIAL INSOMNIA
     Dosage: 0.25 MG, QD
     Route: 048
     Dates: start: 20100323, end: 20101130
  4. TOLEDOMIN [Concomitant]
     Active Substance: MILNACIPRAN HYDROCHLORIDE
     Indication: DEPRESSION
     Dosage: 25 MG, BID
     Route: 048
     Dates: start: 20100323, end: 20101223
  5. ABILIFY [Suspect]
     Active Substance: ARIPIPRAZOLE
     Indication: BIPOLAR DISORDER
     Dosage: 3 MG, BID
     Route: 048
     Dates: start: 20100323, end: 20101210
  6. ANAFRANIL [Concomitant]
     Active Substance: CLOMIPRAMINE HYDROCHLORIDE
     Indication: DEPRESSION
     Dosage: 25 MG, BID
     Route: 048
     Dates: start: 20100323, end: 20101223
  7. ABILIFY [Suspect]
     Active Substance: ARIPIPRAZOLE
     Indication: ANGER
     Dosage: 6 MG, QD
     Route: 048
     Dates: start: 20120314, end: 20120328
  8. ANAFRANIL [Concomitant]
     Active Substance: CLOMIPRAMINE HYDROCHLORIDE
     Indication: ANXIETY
  9. ZOLOFT [Concomitant]
     Active Substance: SERTRALINE HYDROCHLORIDE
     Indication: PRODUCT USED FOR UNKNOWN INDICATION
     Dosage: UNK
     Route: 065
  10. ABILIFY [Suspect]
     Active Substance: ARIPIPRAZOLE
     Indication: IMPULSIVE BEHAVIOUR
     Dosage: 3 MG, BID
     Route: 048
     Dates: start: 20110816, end: 20120313
  11. SODIUM VALPROATE [Concomitant]
     Active Substance: VALPROATE SODIUM
     Indication: PRODUCT USED FOR UNKNOWN INDICATION
     Dosage: 400 MG, QD
     Route: 048
  12. TOLEDOMIN [Concomitant]
     Active Substance: MILNACIPRAN HYDROCHLORIDE
     Indication: LISTLESS
  13. ABILIFY [Suspect]
     Active Substance: ARIPIPRAZOLE
     Indication: AGGRESSION
     Dosage: 3 MG, QD
     Route: 048
     Dates: start: 20120314, end: 20120328

REACTIONS (4)
  - Premature delivery [Unknown]
  - Breast feeding [Unknown]
  - Maternal exposure during pregnancy [Recovered/Resolved]
  - Off label use [Unknown]

NARRATIVE: CASE EVENT DATE: 20101026
